FAERS Safety Report 7884002-9 (Version None)
Quarter: 2011Q4

REPORT INFORMATION
  Report Type: 
  Country: None (occurrence: None)
  Receive Date: 20111102
  Receipt Date: 20111025
  Transmission Date: 20120403
  Serious: Yes (Life-Threatening, Hospitalization, Other)
  Sender: FDA-Public Use
  Company Number: PHEH2011US06860

PATIENT
  Sex: Male
  Weight: 73.878 kg

DRUGS (3)
  1. GLEEVEC [Suspect]
     Indication: GASTRIC CANCER
     Dosage: 400 MG, QD
     Route: 048
     Dates: start: 20110305
  2. GLEEVEC [Suspect]
     Indication: GASTROINTESTINAL STROMAL TUMOUR
  3. HEPARIN [Concomitant]

REACTIONS (8)
  - POOR PERIPHERAL CIRCULATION [None]
  - HAEMOGLOBIN DECREASED [None]
  - HAEMORRHAGE [None]
  - SHOCK [None]
  - NEOPLASM MALIGNANT [None]
  - ABDOMINAL PAIN [None]
  - GASTROINTESTINAL STROMAL TUMOUR [None]
  - THROMBOSIS [None]
